FAERS Safety Report 4582144-7 (Version None)
Quarter: 2005Q1

REPORT INFORMATION
  Report Type: 
  Country: None (occurrence: None)
  Receive Date: 20050119
  Receipt Date: 20040204
  Transmission Date: 20050727
  Serious: Yes (Death, Hospitalization)
  Sender: FDA-Public Use
  Company Number: A03200400344

PATIENT
  Age: 80 Year
  Sex: Male
  Weight: 77.1115 kg

DRUGS (5)
  1. PLAVIX [Suspect]
     Indication: ISCHAEMIC STROKE
     Dosage: 75 MG QD - ORAL
     Route: 048
     Dates: start: 20001001
  2. DAYPRO [Suspect]
     Indication: ARTHRALGIA
  3. ASPIRIN [Suspect]
     Dosage: 325 MG QD - ORAL
     Route: 048
  4. BLOOD PRESSURE PILL NOS [Concomitant]
  5. PILL FOR TYPE II DIABETES MELLITUS [Concomitant]

REACTIONS (1)
  - RECTAL HAEMORRHAGE [None]
